FAERS Safety Report 16978695 (Version 1)
Quarter: 2019Q4

REPORT INFORMATION
  Report Type: Spontaneous
  Country: CA (occurrence: CA)
  Receive Date: 20191031
  Receipt Date: 20191031
  Transmission Date: 20200122
  Serious: Yes (Hospitalization, Other)
  Sender: FDA-Public Use
  Company Number: CA-PFIZER INC-2019468318

PATIENT
  Age: 16 Year
  Sex: Male
  Weight: 45 kg

DRUGS (5)
  1. ATIVAN [Suspect]
     Active Substance: LORAZEPAM
     Indication: AGITATION
     Dosage: 1 MG, 2X/DAY
     Route: 048
  2. ATIVAN [Suspect]
     Active Substance: LORAZEPAM
     Dosage: 0.5 MG, 2X/DAY
     Route: 048
  3. INTUNIV [Suspect]
     Active Substance: GUANFACINE HYDROCHLORIDE
     Indication: ATTENTION DEFICIT/HYPERACTIVITY DISORDER
     Dosage: 1 MG, 1X/DAY
     Route: 048
  4. ATIVAN [Suspect]
     Active Substance: LORAZEPAM
     Indication: AGGRESSION
     Dosage: 1.5 MG, 2X/DAY
     Route: 048
  5. FLUOXETINE [Concomitant]
     Active Substance: FLUOXETINE HYDROCHLORIDE
     Dosage: UNK

REACTIONS (4)
  - Aggression [Recovered/Resolved]
  - Product use in unapproved indication [Unknown]
  - Agitation [Recovered/Resolved]
  - Off label use [Unknown]
